FAERS Safety Report 18554847 (Version 1)
Quarter: 2020Q4

REPORT INFORMATION
  Report Type: Report from Study
  Country: None (occurrence: CA)
  Receive Date: 20201127
  Receipt Date: 20201127
  Transmission Date: 20210114
  Serious: Yes (Other)
  Sender: FDA-Public Use
  Company Number: CA-ABBVIE-20K-028-3664362-00

PATIENT
  Age: 30 Year
  Sex: Female

DRUGS (1)
  1. HUMIRA [Suspect]
     Active Substance: ADALIMUMAB
     Indication: PRODUCT USED FOR UNKNOWN INDICATION
     Route: 058

REACTIONS (15)
  - Pain [Unknown]
  - Psoriasis [Unknown]
  - Suicidal ideation [Unknown]
  - Musculoskeletal stiffness [Unknown]
  - Back pain [Not Recovered/Not Resolved]
  - Dactylitis [Unknown]
  - Uveitis [Unknown]
  - Irritable bowel syndrome [Unknown]
  - Sleep disorder [Unknown]
  - Illness [Unknown]
  - Fatigue [Unknown]
  - Mental disorder [Unknown]
  - Enthesopathy [Unknown]
  - Joint range of motion decreased [Unknown]
  - Nail psoriasis [Unknown]
